FAERS Safety Report 5187809-4 (Version None)
Quarter: 2006Q4

REPORT INFORMATION
  Report Type: 
  Country: None (occurrence: None)
  Receive Date: 20061221
  Receipt Date: 20061212
  Transmission Date: 20070319
  Serious: Yes (Hospitalization)
  Sender: FDA-Public Use
  Company Number: US-JNJFOC-20061203232

PATIENT
  Sex: Female
  Weight: 73.03 kg

DRUGS (7)
  1. REMICADE [Suspect]
     Route: 042
  2. REMICADE [Suspect]
     Route: 042
  3. REMICADE [Suspect]
     Route: 042
  4. REMICADE [Suspect]
     Indication: CROHN'S DISEASE
     Route: 042
  5. 5 ASA [Concomitant]
  6. 6-MP [Concomitant]
  7. METHOTREXATE SODIUM [Concomitant]

REACTIONS (2)
  - CROHN'S DISEASE [None]
  - DIVERTICULITIS [None]
